FAERS Safety Report 11700260 (Version 1)
Quarter: 2015Q4

REPORT INFORMATION
  Report Type: Spontaneous
  Country: US (occurrence: US)
  Receive Date: 20151105
  Receipt Date: 20151105
  Transmission Date: 20160304
  Serious: No
  Sender: FDA-Public Use
  Company Number: US-PFIZER INC-2015354593

PATIENT
  Age: 57 Year
  Sex: Female

DRUGS (7)
  1. IBRANCE [Suspect]
     Active Substance: PALBOCICLIB
     Dosage: 125 MG, UNK
     Dates: start: 20150323
  2. VASOTEC [Concomitant]
     Active Substance: ENALAPRIL MALEATE
     Dosage: UNK
  3. ASPIRIN. [Concomitant]
     Active Substance: ASPIRIN
     Dosage: UNK
  4. OXYCODONE-ACETAMINOPHEN [Concomitant]
     Active Substance: ACETAMINOPHEN\OXYCODONE HYDROCHLORIDE
     Dosage: UNK
  5. AMLODIPINE BESYLATE. [Concomitant]
     Active Substance: AMLODIPINE BESYLATE
     Dosage: UNK
  6. HYDRALAZINE HCL [Concomitant]
     Active Substance: HYDRALAZINE HYDROCHLORIDE
     Dosage: UNK
  7. NAPROXEN. [Concomitant]
     Active Substance: NAPROXEN
     Dosage: UNK

REACTIONS (3)
  - Lip swelling [Unknown]
  - Swelling face [Unknown]
  - Hypoaesthesia [Unknown]
